FAERS Safety Report 10578850 (Version 3)
Quarter: 2015Q1

REPORT INFORMATION
  Report Type: Report from Study
  Country: DE (occurrence: DE)
  Receive Date: 20141112
  Receipt Date: 20150320
  Transmission Date: 20150720
  Serious: Yes (Hospitalization)
  Sender: FDA-Public Use
  Company Number: DE-SA-2014SA153834

PATIENT
  Age: 66 Year
  Sex: Male
  Weight: 94 kg

DRUGS (12)
  1. LANTUS [Suspect]
     Active Substance: INSULIN GLARGINE
     Indication: TYPE 2 DIABETES MELLITUS
     Dosage: DOSE:8 UNIT(S)
     Route: 065
     Dates: start: 20131018
  2. VIANI [Concomitant]
     Active Substance: FLUTICASONE PROPIONATE\SALMETEROL XINAFOATE
     Dosage: STRENGTH: 50?G/250?G (ONE IN MORNING AND ONE IN THE EVENING)
  3. JALRA [Concomitant]
     Active Substance: VILDAGLIPTIN
     Dosage: STRENGTH: 50 MG
  4. SIMVA ATID [Concomitant]
     Dosage: STRENGTH: 40 MG HALF IN THE EVENING
  5. MARCUMAR [Concomitant]
     Active Substance: PHENPROCOUMON
  6. DIGIMERCK [Concomitant]
     Active Substance: DIGITOXIN
  7. SPIRONOLACTONE. [Concomitant]
     Active Substance: SPIRONOLACTONE
     Dosage: STRENGTH: 100 MG HALF IN THE MORNING
  8. XIPAMIDE [Concomitant]
     Active Substance: XIPAMIDE
     Dosage: STRENGTH: 40 MG
  9. SPIRIVA [Concomitant]
     Active Substance: TIOTROPIUM BROMIDE MONOHYDRATE
     Dosage: STRENGTH: 18 MCG, ONE IN TEH MORNING
  10. LANTUS [Suspect]
     Active Substance: INSULIN GLARGINE
     Indication: TYPE 2 DIABETES MELLITUS
     Dosage: DOSE:52 UNIT(S)
     Route: 065
     Dates: start: 20140110, end: 20140722
  11. REVATIO [Concomitant]
     Active Substance: SILDENAFIL CITRATE
     Dosage: IN THE MORNING
  12. FUROSEMIDE. [Concomitant]
     Active Substance: FUROSEMIDE
     Dosage: STRENGTH: 40 (ONE IN THE MORNING).

REACTIONS (3)
  - Pneumonia [Recovered/Resolved]
  - Blood glucose abnormal [Unknown]
  - Blood glucose increased [Unknown]

NARRATIVE: CASE EVENT DATE: 20131121
